FAERS Safety Report 8575966-9 (Version None)
Quarter: 2012Q3

REPORT INFORMATION
  Report Type: 
  Country: None (occurrence: None)
  Receive Date: 20120807
  Receipt Date: 20120712
  Transmission Date: 20120928
  Serious: No
  Sender: FDA-Public Use
  Company Number: US-009507513-1207USA007067

PATIENT

DRUGS (4)
  1. PROCRIT [Concomitant]
     Dosage: 300 UNK, UNK
  2. VICTRELIS [Suspect]
     Dosage: 4 DF, TID,EVERY 7-9 HOURS
     Route: 048
  3. PEGASYS [Suspect]
  4. REBETOL [Suspect]
     Dosage: 400 MG, UNK

REACTIONS (1)
  - ANAEMIA [None]
